FAERS Safety Report 11002421 (Version 3)
Quarter: 2015Q3

REPORT INFORMATION
  Report Type: Spontaneous
  Country: US (occurrence: US)
  Receive Date: 20150408
  Receipt Date: 20150701
  Transmission Date: 20151125
  Serious: Yes (Other)
  Sender: FDA-Public Use
  Company Number: US-GLAXOSMITHKLINE-US2015GSK046150

PATIENT
  Sex: Female

DRUGS (2)
  1. FLOVENT [Suspect]
     Active Substance: FLUTICASONE PROPIONATE
     Indication: ASTHMA
     Dosage: UNK, U
     Route: 065
     Dates: start: 20100807
  2. FLOVENT [Suspect]
     Active Substance: FLUTICASONE PROPIONATE
     Dosage: UNK, U
     Route: 065

REACTIONS (6)
  - Drug dispensing error [Unknown]
  - Impaired driving ability [Not Recovered/Not Resolved]
  - Arthropathy [Not Recovered/Not Resolved]
  - Expired product administered [Unknown]
  - Disability [Not Recovered/Not Resolved]
  - Walking aid user [Not Recovered/Not Resolved]
